FAERS Safety Report 5756249-9 (Version None)
Quarter: 2008Q2

REPORT INFORMATION
  Report Type: 
  Country: None (occurrence: None)
  Receive Date: 20080602
  Receipt Date: 20080523
  Transmission Date: 20081010
  Serious: Yes (Other)
  Sender: FDA-Public Use
  Company Number: US-PFIZER INC-2008044484

PATIENT
  Sex: Female
  Weight: 90.909 kg

DRUGS (7)
  1. LIPITOR [Suspect]
     Indication: BLOOD CHOLESTEROL INCREASED
     Dates: start: 20080403, end: 20080411
  2. VITAMIN D [Concomitant]
  3. GLIPIZIDE [Concomitant]
  4. METFORMIN HCL [Concomitant]
  5. ALTACE [Concomitant]
  6. TRICOR [Concomitant]
  7. VALSARTAN [Concomitant]

REACTIONS (3)
  - DYSGEUSIA [None]
  - SWOLLEN TONGUE [None]
  - UNEVALUABLE EVENT [None]
